FAERS Safety Report 10510795 (Version 1)
Quarter: 2014Q4

REPORT INFORMATION
  Report Type: Spontaneous
  Country: GB (occurrence: None)
  Receive Date: 20141008
  Receipt Date: 20141008
  Transmission Date: 20150528
  Serious: Yes (Hospitalization, Disabling, Other)
  Sender: FDA-Public Use
  Company Number: GB-DEXPHARM-20140626

PATIENT
  Age: 38 Year
  Sex: Female

DRUGS (5)
  1. TRAMADOL [Concomitant]
     Active Substance: TRAMADOL
  2. DICLOFENAC [Concomitant]
     Active Substance: DICLOFENAC
  3. OMEPRAZOLE. [Suspect]
     Active Substance: OMEPRAZOLE
  4. COLOFAC [Concomitant]
     Active Substance: MEBEVERINE HYDROCHLORIDE
  5. LYSINE [Concomitant]
     Active Substance: LYSINE

REACTIONS (3)
  - Syncope [None]
  - Confusional state [None]
  - Seizure [None]

NARRATIVE: CASE EVENT DATE: 20140906
